FAERS Safety Report 13603370 (Version 1)
Quarter: 2017Q2

REPORT INFORMATION
  Report Type: Spontaneous
  Country: US (occurrence: US)
  Receive Date: 20170601
  Receipt Date: 20170601
  Transmission Date: 20170912
  Serious: No
  Sender: FDA-Public Use
  Company Number: US-OTSUKA-2016_014742

PATIENT
  Sex: Female

DRUGS (2)
  1. SAMSCA [Suspect]
     Indication: INAPPROPRIATE ANTIDIURETIC HORMONE SECRETION
     Dosage: 15 MG, QW; ONCE WEEKLY (ON SUNDAYS)
     Route: 048
  2. SAMSCA [Suspect]
     Dosage: UNK
     Route: 065

REACTIONS (2)
  - Blood pressure systolic decreased [Unknown]
  - Inappropriate schedule of drug administration [Unknown]
